FAERS Safety Report 8029915-2 (Version None)
Quarter: 2012Q1

REPORT INFORMATION
  Report Type: 
  Country: None (occurrence: None)
  Receive Date: 20120106
  Receipt Date: 20120106
  Transmission Date: 20120608
  Serious: Yes (Hospitalization)
  Sender: FDA-Public Use
  Company Number: None

PATIENT
  Sex: Male
  Weight: 11.4 kg

DRUGS (3)
  1. DAUNORUBICIN HCL [Suspect]
     Dosage: 32 MG
  2. THIOGUANINE [Suspect]
     Dosage: 160 MG
  3. CYTARABINE [Suspect]
     Dosage: 320 MG

REACTIONS (3)
  - HEPATIC FAILURE [None]
  - PNEUMONIA [None]
  - WEANING FAILURE [None]
